FAERS Safety Report 7726115-8 (Version None)
Quarter: 2011Q3

REPORT INFORMATION
  Report Type: 
  Country: None (occurrence: None)
  Receive Date: 20110902
  Receipt Date: 20110802
  Transmission Date: 20111222
  Serious: Yes (Hospitalization, Other)
  Sender: FDA-Public Use
  Company Number: PHHY2011JP38278

PATIENT
  Sex: Female
  Weight: 39 kg

DRUGS (13)
  1. TRASTUZUMAB [Suspect]
     Dosage: 2 MG/KG, REPEATED WEEKLY
     Dates: start: 20091001
  2. DOCETAXEL [Concomitant]
     Indication: BREAST CANCER METASTATIC
  3. PACLITAXEL [Suspect]
     Dosage: 30 MG/M2, REPEATED WEEKLY
     Dates: start: 20091001
  4. CYCLOPHOSPHAMIDE [Concomitant]
     Indication: BREAST CANCER METASTATIC
  5. ZOMETA [Suspect]
     Indication: HYPERCALCAEMIA OF MALIGNANCY
     Dosage: 4 MG, OVER 15 MINUTES WEEKLY
     Dates: start: 20090930, end: 20091126
  6. SODIUM BICARBONATE [Concomitant]
  7. EPIRUBICIN HYDROCHLORIDE [Concomitant]
     Indication: BREAST CANCER METASTATIC
  8. HERCEPTIN [Concomitant]
     Indication: BREAST CANCER METASTATIC
     Dates: start: 20091006, end: 20100518
  9. EFUDEX [Concomitant]
     Indication: BREAST CANCER METASTATIC
  10. ELCITONIN [Concomitant]
     Indication: HYPERCALCAEMIA
     Dates: start: 20090930, end: 20091002
  11. SODIUM BICARBONATE [Concomitant]
     Dosage: 100 ML, DAILY
  12. TRASTUZUMAB [Suspect]
     Indication: HYPERCALCAEMIA OF MALIGNANCY
     Dosage: 4 MG/KG, UNK
  13. SPIRONOLACTONE [Concomitant]

REACTIONS (16)
  - URINE POTASSIUM INCREASED [None]
  - HYPOKALAEMIA [None]
  - HYPOPHOSPHATAEMIA [None]
  - URINE PHOSPHORUS INCREASED [None]
  - FANCONI SYNDROME [None]
  - HYPOCALCAEMIA [None]
  - GLYCOSURIA [None]
  - LIVER DISORDER [None]
  - ACIDOSIS HYPERCHLORAEMIC [None]
  - METABOLIC ACIDOSIS [None]
  - HYPOURICAEMIA [None]
  - PROTEINURIA [None]
  - BLOOD BICARBONATE DECREASED [None]
  - AMINOACIDURIA [None]
  - DIABETIC NEPHROPATHY [None]
  - METASTASES TO LIVER [None]
